FAERS Safety Report 12870807 (Version 1)
Quarter: 2016Q4

REPORT INFORMATION
  Report Type: Spontaneous
  Country: US (occurrence: US)
  Receive Date: 20161021
  Receipt Date: 20161021
  Transmission Date: 20170207
  Serious: Yes (Other)
  Sender: FDA-Public Use
  Company Number: US-ABBVIE-16P-163-1753715-00

PATIENT
  Age: 63 Year
  Sex: Female
  Weight: 56.75 kg

DRUGS (3)
  1. SYNTHROID [Suspect]
     Active Substance: LEVOTHYROXINE SODIUM
     Indication: PRODUCT USED FOR UNKNOWN INDICATION
     Route: 048
     Dates: start: 2010, end: 2011
  2. TIROSINT [Suspect]
     Active Substance: LEVOTHYROXINE SODIUM
     Indication: THYROIDECTOMY
     Route: 048
     Dates: start: 2011, end: 201608
  3. TIROSINT [Suspect]
     Active Substance: LEVOTHYROXINE SODIUM
     Dosage: ONE CAPSULE MONDAY THROUGH FRIDAY AND NO MEDICATION ON SATURDAY OR SUNDAY.
     Route: 048
     Dates: start: 201608

REACTIONS (13)
  - Night sweats [Recovering/Resolving]
  - Thyroidectomy [Unknown]
  - Diarrhoea [Recovering/Resolving]
  - Irritability [Recovering/Resolving]
  - Alopecia [Recovering/Resolving]
  - Hepatic enzyme increased [Unknown]
  - Anxiety [Recovering/Resolving]
  - Night sweats [Recovering/Resolving]
  - Speech disorder [Unknown]
  - Insomnia [Recovering/Resolving]
  - Diarrhoea [Recovering/Resolving]
  - Depression [Recovering/Resolving]
  - Anxiety [Recovering/Resolving]

NARRATIVE: CASE EVENT DATE: 2010
